FAERS Safety Report 12745252 (Version 1)
Quarter: 2016Q3

REPORT INFORMATION
  Report Type: Spontaneous
  Country: US (occurrence: US)
  Receive Date: 20160915
  Receipt Date: 20160915
  Transmission Date: 20161109
  Serious: Yes (Hospitalization)
  Sender: FDA-Public Use
  Company Number: US-ACTELION-A-NJ2014-99224

PATIENT
  Age: 78 Year
  Sex: Female

DRUGS (6)
  1. TRACLEER [Suspect]
     Active Substance: BOSENTAN
     Dosage: 62.5 MG, BID
     Route: 048
     Dates: start: 20120909, end: 20121018
  2. VELETRI [Suspect]
     Active Substance: EPOPROSTENOL
     Dosage: 43.5 NG/KG, UNK
     Route: 042
  3. VELETRI [Suspect]
     Active Substance: EPOPROSTENOL
     Indication: PULMONARY ARTERIAL HYPERTENSION
     Dosage: 44 NG/KG, PER MIN
     Route: 042
     Dates: start: 20130204
  4. ADCIRCA [Concomitant]
     Active Substance: TADALAFIL
  5. TRACLEER [Suspect]
     Active Substance: BOSENTAN
     Indication: PULMONARY ARTERIAL HYPERTENSION
     Dosage: 125 MG, BID
     Route: 048
     Dates: start: 20121019
  6. VELETRI [Suspect]
     Active Substance: EPOPROSTENOL
     Dosage: 37.3 NG/KG, UNK
     Route: 042

REACTIONS (4)
  - Fluid overload [Unknown]
  - Fluid retention [Unknown]
  - Dyspnoea [Recovering/Resolving]
  - Pericardial effusion [Unknown]

NARRATIVE: CASE EVENT DATE: 20140514
